FAERS Safety Report 21584024 (Version 3)
Quarter: 2023Q1

REPORT INFORMATION
  Report Type: Spontaneous
  Country: US (occurrence: US)
  Receive Date: 20221111
  Receipt Date: 20230113
  Transmission Date: 20230417
  Serious: No
  Sender: FDA-Public Use
  Company Number: US-SANOFI-01355665

PATIENT
  Sex: Female

DRUGS (2)
  1. DUPIXENT [Suspect]
     Active Substance: DUPILUMAB
     Indication: Eczema
     Dosage: 300 MG, QOW
     Dates: start: 2020
  2. CORTISONE [Concomitant]
     Active Substance: CORTISONE
     Indication: Eczema

REACTIONS (2)
  - Fear of injection [Unknown]
  - Rash vesicular [Unknown]
